FAERS Safety Report 7685071-1 (Version None)
Quarter: 2011Q3

REPORT INFORMATION
  Report Type: 
  Country: None (occurrence: None)
  Receive Date: 20110816
  Receipt Date: 20110802
  Transmission Date: 20111222
  Serious: Yes (Hospitalization)
  Sender: FDA-Public Use
  Company Number: DE-UCBSA-020296

PATIENT
  Sex: Male
  Weight: 90 kg

DRUGS (7)
  1. PASPETIN [Concomitant]
     Indication: NAUSEA
     Dosage: 20 DROPS IF NECESSARY
  2. VOMEX A [Concomitant]
     Indication: NAUSEA
     Dosage: IF NECESSARY
  3. KEPPRA [Concomitant]
     Indication: EPILEPSY
     Route: 048
     Dates: start: 20050101
  4. VIMPAT [Suspect]
     Indication: EPILEPSY
     Dosage: 250 TWICE DAILY
     Route: 048
     Dates: start: 20090115
  5. ZEBINIX [Concomitant]
     Indication: EPILEPSY
     Route: 048
  6. PASPETIN [Concomitant]
     Indication: PAIN
     Dosage: 20 DROPS IF NECESSARY
  7. NOVALGIN [Concomitant]
     Indication: PAIN
     Dosage: 20 DROPS IF NECESSARY

REACTIONS (3)
  - PATIENT-DEVICE INCOMPATIBILITY [None]
  - INFLAMMATION [None]
  - MEDICAL DEVICE REMOVAL [None]
